FAERS Safety Report 13404187 (Version 1)
Quarter: 2017Q2

REPORT INFORMATION
  Report Type: Spontaneous
  Country: JP (occurrence: JP)
  Receive Date: 20170405
  Receipt Date: 20170405
  Transmission Date: 20170830
  Serious: Yes (Death, Hospitalization)
  Sender: FDA-Public Use
  Company Number: JP-CELGENEUS-JPN-2017039067

PATIENT
  Age: 83 Year
  Sex: Male

DRUGS (2)
  1. REVLIMID [Suspect]
     Active Substance: LENALIDOMIDE
     Indication: PLASMA CELL MYELOMA
     Dosage: 10 MILLIGRAM
     Route: 048
     Dates: start: 20140813, end: 20170125
  2. LENADEX [Suspect]
     Active Substance: DEXAMETHASONE ACETATE
     Indication: PLASMA CELL MYELOMA
     Dosage: 10 MILLIGRAM
     Route: 048
     Dates: start: 20140813, end: 20170125

REACTIONS (2)
  - Decreased appetite [Not Recovered/Not Resolved]
  - Starvation [Fatal]

NARRATIVE: CASE EVENT DATE: 20170217
